FAERS Safety Report 5079029-9 (Version None)
Quarter: 2006Q3

REPORT INFORMATION
  Report Type: 
  Country: None (occurrence: None)
  Receive Date: 20060808
  Receipt Date: 20060726
  Transmission Date: 20061208
  Serious: Yes (Other)
  Sender: FDA-Public Use
  Company Number: 2006092777

PATIENT
  Age: 49 Year
  Sex: Male

DRUGS (8)
  1. LINEZOLID [Suspect]
     Indication: DRUG USE FOR UNKNOWN INDICATION
     Dosage: 1200 MG (600 MG, 2 IN 1 D), ORAL
     Route: 048
  2. INSULIN GLARGINE (INSULIN GLARGINE) [Concomitant]
  3. INSULIN [Concomitant]
  4. RANITIDINE [Concomitant]
  5. PRAVASTATIN [Concomitant]
  6. LISINOPRIL [Concomitant]
  7. LEVOTHYROXINE SODIUM [Concomitant]
  8. VANCOMYCIN [Concomitant]

REACTIONS (7)
  - ABDOMINAL DISCOMFORT [None]
  - DISEASE RECURRENCE [None]
  - FACIAL PALSY [None]
  - HERPES VIRUS INFECTION [None]
  - LACRIMATION INCREASED [None]
  - NAUSEA [None]
  - VOMITING [None]
